FAERS Safety Report 9410420 (Version 2)
Quarter: 2013Q3

REPORT INFORMATION
  Report Type: Spontaneous
  Country: FR (occurrence: FR)
  Receive Date: 20130719
  Receipt Date: 20130926
  Transmission Date: 20140515
  Serious: Yes (Hospitalization)
  Sender: FDA-Public Use
  Company Number: FR-ASTRAZENECA-2013SE52113

PATIENT
  Age: 24529 Day
  Sex: Male
  Weight: 87 kg

DRUGS (6)
  1. BRILIQUE [Suspect]
     Indication: ANGINA UNSTABLE
     Route: 048
     Dates: start: 20130627, end: 20130628
  2. COOLMETEC [Concomitant]
     Indication: HYPERTENSION
  3. ZANIDIP [Concomitant]
     Indication: HYPERTENSION
  4. TEMERIT [Concomitant]
     Indication: MYOCARDIAL ISCHAEMIA
  5. ASPEGIC [Concomitant]
     Indication: MYOCARDIAL ISCHAEMIA
  6. STAGID [Concomitant]
     Indication: DIABETES MELLITUS

REACTIONS (5)
  - Pyrexia [Recovered/Resolved]
  - CSF protein increased [Unknown]
  - CSF white blood cell count increased [Unknown]
  - CSF glucose increased [Unknown]
  - Confusional state [Recovered/Resolved]
